FAERS Safety Report 8537866 (Version 4)
Quarter: 2012Q4

REPORT INFORMATION
  Report Type: 
  Country: GB (occurrence: GB)
  Receive Date: 20120501
  Receipt Date: 20121106
  Transmission Date: 20130627
  Serious: Yes (Other)
  Sender: FDA-Public Use
  Company Number: PHFR2012GB002536

PATIENT
  Age: 63 None
  Sex: Male

DRUGS (1)
  1. CLOZARIL [Suspect]
     Indication: SCHIZOPHRENIA
     Route: 048
     Dates: start: 20040205, end: 20121010

REACTIONS (5)
  - Bladder cancer [Unknown]
  - Bronchitis [Recovered/Resolved]
  - Ileus [Recovered/Resolved]
  - Gastrointestinal motility disorder [Recovering/Resolving]
  - Neutrophil count increased [Unknown]
